FAERS Safety Report 11800706 (Version 1)
Quarter: 2015Q4

REPORT INFORMATION
  Report Type: Spontaneous
  Country: US (occurrence: US)
  Receive Date: 20151204
  Receipt Date: 20151204
  Transmission Date: 20160305
  Serious: No
  Sender: FDA-Public Use
  Company Number: US-ASTRAZENECA-2011SE58107

PATIENT
  Sex: Male

DRUGS (1)
  1. SYMBICORT [Suspect]
     Active Substance: BUDESONIDE\FORMOTEROL FUMARATE DIHYDRATE
     Dosage: 160/4.5, DOSE AND FREQUENCY UNKNOWN
     Route: 055

REACTIONS (4)
  - Asthma [Unknown]
  - Dyspnoea [Unknown]
  - Depression [Unknown]
  - Drug dose omission [Unknown]
